FAERS Safety Report 5993354-6 (Version None)
Quarter: 2008Q4

REPORT INFORMATION
  Report Type: 
  Country: None (occurrence: None)
  Receive Date: 20081212
  Receipt Date: 20081209
  Transmission Date: 20090506
  Serious: Yes (Other)
  Sender: FDA-Public Use
  Company Number: BR-BRISTOL-MYERS SQUIBB COMPANY-14093694

PATIENT
  Age: 23 Year
  Sex: Female
  Weight: 72 kg

DRUGS (3)
  1. ORENCIA [Suspect]
     Indication: RHEUMATOID ARTHRITIS
     Dosage: FIRST INFUSION ON 12NOV07 AND SECOND INFUSION ON 30NOV07.
     Route: 042
     Dates: start: 20071112
  2. SULFASALAZINE [Concomitant]
     Indication: RHEUMATOID ARTHRITIS
     Route: 048
     Dates: start: 20060501, end: 20081201
  3. LEFLUNOMIDE [Concomitant]
     Indication: RHEUMATOID ARTHRITIS
     Route: 048
     Dates: start: 20060501, end: 20081201

REACTIONS (2)
  - ABORTION SPONTANEOUS [None]
  - PREGNANCY [None]
